FAERS Safety Report 4897109-5 (Version None)
Quarter: 2006Q1

REPORT INFORMATION
  Report Type: 
  Country: None (occurrence: None)
  Receive Date: 20060127
  Receipt Date: 20060112
  Transmission Date: 20060701
  Serious: Yes (Death, Hospitalization)
  Sender: FDA-Public Use
  Company Number: FR200601001963

PATIENT
  Age: 77 Year
  Sex: Male
  Weight: 60 kg

DRUGS (5)
  1. ALIMTA [Suspect]
     Indication: PLEURAL MESOTHELIOMA
     Dosage: 800 MG, OTHER, INTRAVENOUS
     Route: 042
     Dates: start: 20050831
  2. CARBOPLATIN [Concomitant]
  3. AMITRIPTYLINE HCL [Concomitant]
  4. ZOFRAN [Concomitant]
  5. EFFERALGAN CODEINE (CODEINE PHOSPHATE, PARACETAMOL) TABLET, SOLUBLE [Concomitant]

REACTIONS (8)
  - ANOREXIA [None]
  - BLOOD CREATININE INCREASED [None]
  - CREATININE RENAL CLEARANCE DECREASED [None]
  - FEBRILE NEUTROPENIA [None]
  - GENERAL PHYSICAL HEALTH DETERIORATION [None]
  - PANCYTOPENIA [None]
  - PNEUMONIA [None]
  - WEIGHT DECREASED [None]
